FAERS Safety Report 9267431 (Version 1)
Quarter: 2013Q2

REPORT INFORMATION
  Report Type: Spontaneous
  Country: ES (occurrence: ES)
  Receive Date: 20130502
  Receipt Date: 20130502
  Transmission Date: 20140414
  Serious: Yes (Other)
  Sender: FDA-Public Use
  Company Number: ES-PFIZER INC-2013129732

PATIENT
  Age: 80 Year
  Sex: Male

DRUGS (4)
  1. PHENYTOIN SODIUM [Suspect]
     Indication: GRAND MAL CONVULSION
     Dosage: 750 MG
     Route: 040
  2. PHENYTOIN SODIUM [Suspect]
     Dosage: 300 MG/DAY
     Route: 040
  3. ACENOCOUMAROL [Concomitant]
     Dosage: UNK
  4. PARACETAMOL [Concomitant]
     Indication: PAIN
     Dosage: UNK

REACTIONS (2)
  - Dyskinesia [Recovered/Resolved]
  - Dysarthria [Recovered/Resolved]
